FAERS Safety Report 7466098-1 (Version None)
Quarter: 2011Q2

REPORT INFORMATION
  Report Type: 
  Country: None (occurrence: None)
  Receive Date: 20110509
  Receipt Date: 20110427
  Transmission Date: 20111010
  Serious: Yes (Other)
  Sender: FDA-Public Use
  Company Number: DE-TEVA-279097ISR

PATIENT
  Age: 67 Year
  Sex: Male

DRUGS (6)
  1. AZILECT [Suspect]
     Indication: PARKINSON'S DISEASE
  2. MADOPAR  DEPOT [Suspect]
  3. AMANTADINE HCL [Suspect]
  4. ROPINIROLE HYDROCHLORIDE [Suspect]
     Dates: start: 20080911
  5. ROPINIROLE HYDROCHLORIDE [Suspect]
     Indication: PARKINSON'S DISEASE
     Dates: start: 20031127, end: 20080911
  6. STALEVO 100 [Suspect]

REACTIONS (3)
  - DYSKINESIA [None]
  - CEREBROVASCULAR ACCIDENT [None]
  - OEDEMA PERIPHERAL [None]
